FAERS Safety Report 20355400 (Version 2)
Quarter: 2022Q1

REPORT INFORMATION
  Report Type: Spontaneous
  Country: BR (occurrence: BR)
  Receive Date: 20220120
  Receipt Date: 20220210
  Transmission Date: 20220424
  Serious: Yes (Other)
  Sender: FDA-Public Use
  Company Number: BR-PFIZER INC-202101878255

PATIENT
  Sex: Female

DRUGS (2)
  1. XALATAN [Suspect]
     Active Substance: LATANOPROST
     Dosage: UNK
  2. XALATAN [Suspect]
     Active Substance: LATANOPROST
     Dosage: UNK

REACTIONS (1)
  - Pneumonia [Recovering/Resolving]
